FAERS Safety Report 4308288-2 (Version None)
Quarter: 2004Q1

REPORT INFORMATION
  Report Type: 
  Country: None (occurrence: None)
  Receive Date: 20040301
  Receipt Date: 20031107
  Transmission Date: 20041129
  Serious: No
  Sender: FDA-Public Use
  Company Number: US-BRISTOL-MYERS SQUIBB COMPANY-12430427

PATIENT
  Age: 65 Year
  Sex: Female
  Weight: 93 kg

DRUGS (9)
  1. GLUCOPHAGE [Suspect]
     Indication: DIABETES MELLITUS
     Dosage: 1 TABLET IN THE MORNING AND 2 TABLETS IN THE EVENING
     Route: 048
  2. SYNTHROID [Concomitant]
  3. ALLEGRA [Concomitant]
  4. ZOCOR [Concomitant]
  5. ENALAPRIL MALEATE [Concomitant]
  6. TRILEPTAL [Concomitant]
  7. FUROSEMIDE [Concomitant]
  8. ASPIRIN [Concomitant]
  9. ULTRAM [Concomitant]

REACTIONS (1)
  - DYSGEUSIA [None]
